FAERS Safety Report 25973367 (Version 3)
Quarter: 2025Q4

REPORT INFORMATION
  Report Type: Spontaneous
  Country: EU (occurrence: EU)
  Receive Date: 20251029
  Receipt Date: 20251120
  Transmission Date: 20260118
  Serious: No
  Sender: ABBVIE
  Company Number: EU-AMGEN-ESPSP2025203376

PATIENT
  Age: 4 Year
  Sex: Female

DRUGS (4)
  1. ADALIMUMAB [Suspect]
     Active Substance: ADALIMUMAB
     Indication: Colitis ulcerative
     Route: 058
  2. ADALIMUMAB [Suspect]
     Active Substance: ADALIMUMAB
     Indication: Uveitis
  3. METHOTREXATE [Concomitant]
     Active Substance: METHOTREXATE
     Indication: Juvenile idiopathic arthritis
     Route: 065
  4. MESALAMINE [Suspect]
     Active Substance: MESALAMINE
     Indication: Colitis ulcerative
     Route: 065

REACTIONS (1)
  - Therapeutic product effect decreased [Unknown]
